FAERS Safety Report 14061413 (Version 1)
Quarter: 2017Q4

REPORT INFORMATION
  Report Type: Spontaneous
  Country: US (occurrence: US)
  Receive Date: 20171009
  Receipt Date: 20171009
  Transmission Date: 20180321
  Serious: No
  Sender: FDA-Public Use
  Company Number: US-009507513-1709USA009021

PATIENT
  Age: 18 Year
  Sex: Female

DRUGS (1)
  1. NEXPLANON [Suspect]
     Active Substance: ETONOGESTREL
     Indication: CONTRACEPTION
     Dosage: 6 MICROGRAM, DAILY
     Route: 059
     Dates: start: 20160519, end: 20170719

REACTIONS (3)
  - Abdominal distension [Unknown]
  - Metrorrhagia [Unknown]
  - Weight increased [Unknown]

NARRATIVE: CASE EVENT DATE: 20170719
